FAERS Safety Report 7940556-5 (Version None)
Quarter: 2011Q4

REPORT INFORMATION
  Report Type: 
  Country: None (occurrence: None)
  Receive Date: 20111114
  Receipt Date: 20110413
  Transmission Date: 20120403
  Serious: Yes (Other)
  Sender: FDA-Public Use
  Company Number: 2011S1000273

PATIENT
  Sex: Male

DRUGS (1)
  1. CUBICIN [Suspect]
     Indication: CELLULITIS
     Dosage: 4 MG/KG; IV
     Route: 042
     Dates: start: 20110411

REACTIONS (1)
  - INTERNATIONAL NORMALISED RATIO INCREASED [None]
